FAERS Safety Report 20496412 (Version 1)
Quarter: 2022Q1

REPORT INFORMATION
  Report Type: Spontaneous
  Country: US (occurrence: None)
  Receive Date: 20220221
  Receipt Date: 20220221
  Transmission Date: 20220424
  Serious: No
  Sender: FDA-Public Use
  Company Number: 2022A068806

PATIENT
  Age: 23476 Day
  Sex: Female
  Weight: 90.8 kg

DRUGS (9)
  1. EVUSHELD [Suspect]
     Active Substance: CILGAVIMAB\TIXAGEVIMAB
     Indication: Plasma cell myeloma
     Dosage: 150.0MG ONCE/SINGLE ADMINISTRATION
     Route: 030
     Dates: start: 20220210
  2. ACYCLOVIR [Concomitant]
     Active Substance: ACYCLOVIR
  3. AMLODIPINE [Concomitant]
     Active Substance: AMLODIPINE BESYLATE
  4. BACTRIM DS [Concomitant]
     Active Substance: SULFAMETHOXAZOLE\TRIMETHOPRIM
     Dosage: EVERY OTHER DAY
  5. DEXAMETHASONE [Concomitant]
     Active Substance: DEXAMETHASONE
  6. GABAPENTIN [Concomitant]
     Active Substance: GABAPENTIN
  7. TYLENOL [Concomitant]
     Active Substance: ACETAMINOPHEN
     Dosage: 10/325, 1 TAB EVERY 4HRS AS NEEDED.
  8. METFORMIN [Concomitant]
     Active Substance: METFORMIN HYDROCHLORIDE
  9. POMALIDOMIDE [Concomitant]
     Active Substance: POMALIDOMIDE
     Dosage: ONCE DAILY, FOR 21 DAYS , HOLDS FOR 7 DAYS AND REPEATS THE DOSE.

REACTIONS (1)
  - Incorrect dose administered [Unknown]

NARRATIVE: CASE EVENT DATE: 20220210
